FAERS Safety Report 7748297-4 (Version None)
Quarter: 2011Q3

REPORT INFORMATION
  Report Type: 
  Country: None (occurrence: None)
  Receive Date: 20110913
  Receipt Date: 20110901
  Transmission Date: 20111222
  Serious: Yes (Other)
  Sender: FDA-Public Use
  Company Number: PHEH2010US03510

PATIENT
  Sex: Male

DRUGS (10)
  1. MECLIZINE [Concomitant]
  2. ZOMETA [Suspect]
  3. METFORMIN HCL [Concomitant]
  4. METOPROLOL TARTRATE [Concomitant]
  5. ACCURETIC [Concomitant]
  6. GLYBURIDE [Concomitant]
  7. WARFARIN SODIUM [Concomitant]
  8. NIASPAN [Concomitant]
  9. AVANDIA [Concomitant]
  10. OMEPRAZOLE [Concomitant]

REACTIONS (10)
  - PAIN [None]
  - DEFORMITY [None]
  - PALPITATIONS [None]
  - INFECTION [None]
  - NEUROPATHY PERIPHERAL [None]
  - OSTEONECROSIS OF JAW [None]
  - PARTNER STRESS [None]
  - OVERDOSE [None]
  - INTERVERTEBRAL DISC DEGENERATION [None]
  - RADICULOPATHY [None]
